FAERS Safety Report 9668424 (Version 2)
Quarter: 2013Q4

REPORT INFORMATION
  Report Type: Spontaneous
  Country: US (occurrence: US)
  Receive Date: 20131105
  Receipt Date: 20131106
  Transmission Date: 20140711
  Serious: No
  Sender: FDA-Public Use
  Company Number: US-009507513-1310USA013970

PATIENT
  Age: 20 Year
  Sex: Female
  Weight: 105.21 kg

DRUGS (2)
  1. NEXPLANON [Suspect]
     Dosage: ETONOGESTREL IMPLANT
     Route: 059
     Dates: start: 20131028, end: 20131028
  2. NEXPLANON [Suspect]
     Dosage: ETONOGESTREL IMPLANT
     Route: 059
     Dates: start: 20131028, end: 20131028

REACTIONS (3)
  - Device difficult to use [Unknown]
  - Product quality issue [Unknown]
  - No adverse event [Unknown]
